FAERS Safety Report 7533337-8 (Version None)
Quarter: 2011Q2

REPORT INFORMATION
  Report Type: 
  Country: None (occurrence: None)
  Receive Date: 20110608
  Receipt Date: 20110504
  Transmission Date: 20111010
  Serious: Yes (Other)
  Sender: FDA-Public Use
  Company Number: US-BAYER-2011-023384

PATIENT
  Age: 32 Year
  Sex: Female
  Weight: 68.027 kg

DRUGS (15)
  1. SYNTHROID [Concomitant]
     Indication: AUTOIMMUNE THYROIDITIS
     Dosage: 0.15 MG, UNK
     Dates: start: 20080420
  2. TRIMOX [Concomitant]
  3. Q-BID [Concomitant]
  4. YAZ [Suspect]
     Indication: MENORRHAGIA
  5. HYOMAX-SL [Concomitant]
     Dosage: 0.125 MG, UNK
     Dates: start: 20080813
  6. LEVOTHROID [Concomitant]
  7. ZITHROMAX [Concomitant]
     Dosage: UNK
     Dates: start: 20020101
  8. LEVOXYL [Concomitant]
  9. TYLENOL W/ CODEINE NO. 3 [Concomitant]
  10. ZYRTEC [Concomitant]
  11. EPIPEN [Concomitant]
  12. HYDROCODONE BITARTRATE AND ACETAMINOPHEN [Concomitant]
     Indication: MENORRHAGIA
     Dosage: UNK
     Dates: start: 20080814
  13. CEPHALEXIN [Concomitant]
  14. NASONEX [Concomitant]
  15. FEXOFENADINE [Concomitant]

REACTIONS (6)
  - CHOLECYSTITIS CHRONIC [None]
  - INJURY [None]
  - GALLBLADDER PAIN [None]
  - EMOTIONAL DISTRESS [None]
  - CHOLELITHIASIS [None]
  - CHOLECYSTITIS [None]
